FAERS Safety Report 13840982 (Version 2)
Quarter: 2017Q3

REPORT INFORMATION
  Report Type: Spontaneous
  Country: FR (occurrence: FR)
  Receive Date: 20170807
  Receipt Date: 20170921
  Transmission Date: 20171127
  Serious: Yes (Other)
  Sender: FDA-Public Use
  Company Number: FR-SA-2017SA140367

PATIENT
  Sex: Female

DRUGS (1)
  1. LEMTRADA [Suspect]
     Active Substance: ALEMTUZUMAB
     Route: 041

REACTIONS (1)
  - Glomerulonephritis membranous [Unknown]
